FAERS Safety Report 4519907-X (Version None)
Quarter: 2004Q4

REPORT INFORMATION
  Report Type: 
  Country: None (occurrence: None)
  Receive Date: 20041207
  Receipt Date: 20041124
  Transmission Date: 20050328
  Serious: Yes (Hospitalization)
  Sender: FDA-Public Use
  Company Number: PHNU2004DE03954

PATIENT
  Age: 11 Month
  Sex: Male

DRUGS (1)
  1. CLOZARIL [Suspect]
     Indication: MEDICATION ERROR
     Dosage: 25 OR 50 MG
     Route: 048
     Dates: start: 20041122, end: 20041122

REACTIONS (6)
  - ACCIDENTAL EXPOSURE [None]
  - FATIGUE [None]
  - MIOSIS [None]
  - MOVEMENT DISORDER [None]
  - SOMNOLENCE [None]
  - TACHYCARDIA [None]
